FAERS Safety Report 5769091-X (Version None)
Quarter: 2008Q2

REPORT INFORMATION
  Report Type: 
  Country: None (occurrence: None)
  Receive Date: 20080612
  Receipt Date: 20080318
  Transmission Date: 20081010
  Serious: No
  Sender: FDA-Public Use
  Company Number: US-ABBOTT-08P-163-0443487-00

PATIENT
  Sex: Male
  Weight: 78.996 kg

DRUGS (9)
  1. HUMIRA [Suspect]
     Indication: PSORIASIS
     Route: 058
     Dates: start: 20080310, end: 20080317
  2. HUMIRA [Suspect]
     Route: 058
     Dates: start: 20080317
  3. GABAPENTIN [Concomitant]
     Indication: NEUROPATHY PERIPHERAL
     Route: 048
  4. CYCLOBENZAPRINE HCL [Concomitant]
     Indication: MUSCLE RELAXANT THERAPY
     Route: 048
  5. DICLOFENAC [Concomitant]
     Indication: ANTIINFLAMMATORY THERAPY
     Route: 048
  6. SIMVASTATIN [Concomitant]
     Indication: BLOOD CHOLESTEROL INCREASED
     Route: 048
  7. BASA [Concomitant]
     Indication: CARDIAC DISORDER
     Route: 048
  8. BASA [Concomitant]
     Indication: PROPHYLAXIS
  9. IBUROFEN [Concomitant]
     Indication: DRUG USE FOR UNKNOWN INDICATION

REACTIONS (2)
  - ABDOMINAL DISCOMFORT [None]
  - FEELING COLD [None]
